FAERS Safety Report 10634000 (Version 2)
Quarter: 2014Q4

REPORT INFORMATION
  Report Type: Spontaneous
  Country: IL (occurrence: IL)
  Receive Date: 20141205
  Receipt Date: 20141205
  Transmission Date: 20150529
  Serious: Yes (Other)
  Sender: FDA-Public Use
  Company Number: IL-BAYER-2014-170741

PATIENT
  Age: 25 Year
  Sex: Female

DRUGS (1)
  1. QLAIR [Suspect]
     Active Substance: DIENOGEST\ESTRADIOL VALERATE
     Dosage: UNK
     Route: 048
     Dates: start: 201405

REACTIONS (2)
  - Headache [None]
  - Optic disc drusen [None]

NARRATIVE: CASE EVENT DATE: 2014
